FAERS Safety Report 18356157 (Version 1)
Quarter: 2020Q4

REPORT INFORMATION
  Report Type: Spontaneous
  Country: US (occurrence: US)
  Receive Date: 20201007
  Receipt Date: 20201007
  Transmission Date: 20210114
  Serious: No
  Sender: FDA-Public Use
  Company Number: US-TEVA-2020-US-1835417

PATIENT
  Age: 49 Year
  Sex: Female

DRUGS (1)
  1. BUPRENORPHINE. [Suspect]
     Active Substance: BUPRENORPHINE
     Indication: PAIN
     Dosage: 10 MCG/HOUR
     Route: 062
     Dates: start: 2016

REACTIONS (5)
  - Vomiting [Unknown]
  - Nausea [Unknown]
  - Drug effect less than expected [Unknown]
  - Withdrawal syndrome [Unknown]
  - Product quality issue [Unknown]

NARRATIVE: CASE EVENT DATE: 202009
